FAERS Safety Report 10200195 (Version 1)
Quarter: 2014Q2

REPORT INFORMATION
  Report Type: Spontaneous
  Country: US (occurrence: US)
  Receive Date: 20140527
  Receipt Date: 20140527
  Transmission Date: 20141212
  Serious: No
  Sender: FDA-Public Use
  Company Number: US-ENDO PHARMACEUTICALS INC.-GILD20140004

PATIENT
  Age: 36 Year
  Sex: Female

DRUGS (1)
  1. GILDESS FE 1/20 TABLETS [Suspect]
     Indication: ORAL CONTRACEPTION
     Dosage: 1/20
     Route: 048
     Dates: start: 2012

REACTIONS (3)
  - Acne [Unknown]
  - Weight increased [Unknown]
  - Nausea [Unknown]
